FAERS Safety Report 14089724 (Version 1)
Quarter: 2017Q4

REPORT INFORMATION
  Report Type: Spontaneous
  Country: US (occurrence: US)
  Receive Date: 20171014
  Receipt Date: 20171014
  Transmission Date: 20180321
  Serious: No
  Sender: FDA-Public Use
  Company Number: US-SA-2017SA168450

PATIENT
  Age: 47 Year
  Sex: Female

DRUGS (9)
  1. VITAMIN D3 [Concomitant]
     Active Substance: CHOLECALCIFEROL
  2. NEURONTIN [Concomitant]
     Active Substance: GABAPENTIN
  3. VITAMIN E [Concomitant]
     Active Substance: .ALPHA.-TOCOPHEROL
  4. ETODOLAC. [Concomitant]
     Active Substance: ETODOLAC
  5. AUBAGIO [Suspect]
     Active Substance: TERIFLUNOMIDE
     Indication: MULTIPLE SCLEROSIS
     Route: 048
  6. LISINOPRIL. [Concomitant]
     Active Substance: LISINOPRIL
  7. TYLENOL [Concomitant]
     Active Substance: ACETAMINOPHEN
  8. OSTEO BI-FLEX [Concomitant]
     Active Substance: CHONDROITIN SULFATE A\GLUCOSAMINE
  9. MILK THISTLE [Concomitant]
     Active Substance: DIETARY SUPPLEMENT\HERBALS\MILK THISTLE

REACTIONS (2)
  - Hypertension [Unknown]
  - Hypoaesthesia [Unknown]
